FAERS Safety Report 7453960-9 (Version None)
Quarter: 2011Q2

REPORT INFORMATION
  Report Type: 
  Country: None (occurrence: None)
  Receive Date: 20110502
  Receipt Date: 20110422
  Transmission Date: 20111010
  Serious: Yes (Other)
  Sender: FDA-Public Use
  Company Number: IT-ASTRAZENECA-2011SE23312

PATIENT
  Age: 58 Year

DRUGS (1)
  1. ANASTROZOLE [Suspect]
     Route: 048

REACTIONS (1)
  - CHOLESTATIC LIVER INJURY [None]
